FAERS Safety Report 4812318-9 (Version None)
Quarter: 2005Q4

REPORT INFORMATION
  Report Type: 
  Country: None (occurrence: None)
  Receive Date: 20051028
  Receipt Date: 20050111
  Transmission Date: 20060501
  Serious: No
  Sender: FDA-Public Use
  Company Number: US-GLAXOSMITHKLINE-A0540250A

PATIENT
  Sex: Male

DRUGS (9)
  1. ADVAIR DISKUS 100/50 [Suspect]
     Indication: EMPHYSEMA
     Dosage: 1PUFF TWICE PER DAY
     Route: 065
     Dates: start: 20040501
  2. ASPIRIN [Concomitant]
  3. SENOKOT [Concomitant]
  4. ALTACE [Concomitant]
  5. CARTIA XT [Concomitant]
  6. TOPROL-XL [Concomitant]
  7. FUROSEMIDE [Concomitant]
  8. PREVACID [Concomitant]
  9. POTASSIUM [Concomitant]

REACTIONS (2)
  - DRUG INEFFECTIVE [None]
  - PHARMACEUTICAL PRODUCT COMPLAINT [None]
